FAERS Safety Report 15907721 (Version 1)
Quarter: 2019Q1

REPORT INFORMATION
  Report Type: Spontaneous
  Country: US (occurrence: US)
  Receive Date: 20190204
  Receipt Date: 20190204
  Transmission Date: 20190417
  Serious: Yes (Disabling)
  Sender: FDA-Public Use
  Company Number: None

PATIENT
  Age: 71 Year
  Sex: Female

DRUGS (11)
  1. CLONIDINE. [Concomitant]
     Active Substance: CLONIDINE
  2. POTASSIUM CL [Concomitant]
     Active Substance: POTASSIUM CHLORIDE
  3. HYDRALAZINE [Concomitant]
     Active Substance: HYDRALAZINE HYDROCHLORIDE
  4. TIZANIDINE. [Concomitant]
     Active Substance: TIZANIDINE
  5. VALSARTAN/HCTZ 320MG/25MG TABLETS [Suspect]
     Active Substance: HYDROCHLOROTHIAZIDE\VALSARTAN
     Indication: HYPERTENSION
     Dosage: ?          QUANTITY:90 TABLET(S);?
     Route: 048
     Dates: start: 20161122, end: 20181120
  6. XANAX [Concomitant]
     Active Substance: ALPRAZOLAM
  7. WARFARIN [Concomitant]
     Active Substance: WARFARIN
  8. IBUPROFEN. [Concomitant]
     Active Substance: IBUPROFEN
  9. VITAMIN D [Concomitant]
     Active Substance: CHOLECALCIFEROL
  10. POTASSIUM CL [Concomitant]
     Active Substance: POTASSIUM CHLORIDE
  11. MACRODANTIN [Concomitant]
     Active Substance: NITROFURANTOIN

REACTIONS (1)
  - Gait inability [None]

NARRATIVE: CASE EVENT DATE: 20181101
